FAERS Safety Report 8990578 (Version 1)
Quarter: 2012Q4

REPORT INFORMATION
  Report Type: Report from Study
  Country: DE (occurrence: DE)
  Receive Date: 20121228
  Receipt Date: 20121228
  Transmission Date: 20130627
  Serious: Yes (Hospitalization, Other)
  Sender: FDA-Public Use
  Company Number: DE-ABBOTT-12P-062-1026677-00

PATIENT
  Age: 27 Year
  Sex: Male
  Weight: 78 kg

DRUGS (1)
  1. HUMIRA [Suspect]
     Indication: ANKYLOSING SPONDYLITIS
     Dosage: Every three to four weeks
     Route: 058
     Dates: start: 20080529, end: 201107

REACTIONS (3)
  - Paraplegia [Recovered/Resolved]
  - Injury [Recovered/Resolved]
  - Lumbar vertebral fracture [Unknown]
